FAERS Safety Report 6209784-3 (Version None)
Quarter: 2009Q2

REPORT INFORMATION
  Report Type: 
  Country: None (occurrence: None)
  Receive Date: 20090601
  Receipt Date: 20090520
  Transmission Date: 20091009
  Serious: Yes (Other)
  Sender: FDA-Public Use
  Company Number: BR-JNJFOC-20090505968

PATIENT
  Age: 37 Year
  Sex: Female
  Weight: 54 kg

DRUGS (1)
  1. ORTHO EVRA [Suspect]
     Indication: OFF LABEL USE
     Dosage: ETHINYL ESTRADIOL 0.6MG/ NORELGESTROMIN 6MG
     Route: 062

REACTIONS (8)
  - AMENORRHOEA [None]
  - HYPOTHYROIDISM [None]
  - INAPPROPRIATE SCHEDULE OF DRUG ADMINISTRATION [None]
  - OFF LABEL USE [None]
  - PRODUCT QUALITY ISSUE [None]
  - STRESS [None]
  - VAGINAL HAEMORRHAGE [None]
  - WITHDRAWAL BLEED [None]
